FAERS Safety Report 4992955-1 (Version None)
Quarter: 2006Q1

REPORT INFORMATION
  Report Type: 
  Country: None (occurrence: None)
  Receive Date: 20060313
  Receipt Date: 20060111
  Transmission Date: 20060701
  Serious: No
  Sender: FDA-Public Use
  Company Number: 2005-BP-21763BP

PATIENT
  Age: 52 Year
  Sex: Female
  Weight: 91.63 kg

DRUGS (6)
  1. SPIRIVA [Suspect]
     Indication: INTERSTITIAL LUNG DISEASE
     Dosage: (18 MCG),IH
     Dates: start: 20051201, end: 20051215
  2. ADVAIR (SERETIDE) [Concomitant]
  3. LASIX [Concomitant]
  4. ZOCOR [Concomitant]
  5. ALBUTEROL SULFATE AUTOHALER [Concomitant]
  6. SINGULAIR [Concomitant]

REACTIONS (3)
  - CIRCUMORAL OEDEMA [None]
  - STOMATITIS [None]
  - SWELLING FACE [None]
